FAERS Safety Report 7461568-4 (Version None)
Quarter: 2011Q2

REPORT INFORMATION
  Report Type: 
  Country: None (occurrence: None)
  Receive Date: 20110506
  Receipt Date: 20110502
  Transmission Date: 20111010
  Serious: Yes (Other)
  Sender: FDA-Public Use
  Company Number: AT-ROXANE LABORATORIES, INC.-2011-RO-00600RO

PATIENT
  Age: 52 Year
  Sex: Male

DRUGS (3)
  1. OXCARBAZEPINE [Suspect]
     Indication: ALCOHOL WITHDRAWAL SYNDROME
  2. PIRACETAM [Suspect]
     Indication: ALCOHOL WITHDRAWAL SYNDROME
  3. PROTHIPENDYL [Suspect]
     Indication: ALCOHOL WITHDRAWAL SYNDROME

REACTIONS (1)
  - DRUG ERUPTION [None]
